FAERS Safety Report 21772269 (Version 1)
Quarter: 2022Q4

REPORT INFORMATION
  Report Type: Spontaneous
  Country: US (occurrence: US)
  Receive Date: 20221223
  Receipt Date: 20221223
  Transmission Date: 20230113
  Serious: No
  Sender: FDA-Public Use
  Company Number: US-009507513-2212USA000600

PATIENT
  Age: 14 Year
  Sex: Male

DRUGS (2)
  1. INTEGRILIN [Suspect]
     Active Substance: EPTIFIBATIDE
     Indication: Ischaemic stroke
     Dosage: CATHETHER DIRECTED, UNK
  2. INTEGRILIN [Suspect]
     Active Substance: EPTIFIBATIDE
     Indication: Cerebral infarction
     Dosage: UNK
     Route: 042

REACTIONS (1)
  - Off label use [Unknown]
